FAERS Safety Report 21949804 (Version 1)
Quarter: 2023Q1

REPORT INFORMATION
  Report Type: Spontaneous
  Country: US (occurrence: None)
  Receive Date: 20230202
  Receipt Date: 20230202
  Transmission Date: 20230417
  Serious: Yes (Other)
  Sender: FDA-Public Use
  Company Number: None

PATIENT
  Age: 47 Year
  Sex: Male
  Weight: 101.25 kg

DRUGS (3)
  1. OXYCODONE [Suspect]
     Active Substance: OXYCODONE
  2. TIZANIDINE [Concomitant]
     Active Substance: TIZANIDINE
  3. TYLENOL [Concomitant]
     Active Substance: ACETAMINOPHEN

REACTIONS (14)
  - Drug ineffective [None]
  - Nonspecific reaction [None]
  - Nausea [None]
  - Vomiting [None]
  - Headache [None]
  - Vision blurred [None]
  - Documented hypersensitivity to administered product [None]
  - Urticaria [None]
  - Abdominal pain upper [None]
  - Feeling abnormal [None]
  - Drug monitoring procedure not performed [None]
  - Legal problem [None]
  - Victim of crime [None]
  - Product communication issue [None]

NARRATIVE: CASE EVENT DATE: 20230105
